FAERS Safety Report 21144175 (Version 3)
Quarter: 2022Q3

REPORT INFORMATION
  Report Type: Spontaneous
  Country: CO (occurrence: CO)
  Receive Date: 20220728
  Receipt Date: 20220919
  Transmission Date: 20221027
  Serious: No
  Sender: FDA-Public Use
  Company Number: CO-PFIZER INC-PV202200022231

PATIENT
  Age: 13 Year
  Sex: Male

DRUGS (3)
  1. GENOTROPIN [Suspect]
     Active Substance: SOMATROPIN
     Dosage: 0.8 MG, UNSPECIFIED FREQUENCY
     Route: 058
     Dates: start: 202204
  2. GENOTROPIN [Suspect]
     Active Substance: SOMATROPIN
     Dosage: 0.8 MG, UNSPECIFIED FRECUENCY
     Route: 058
     Dates: start: 20220401
  3. GENOTROPIN [Suspect]
     Active Substance: SOMATROPIN
     Dosage: 1 MG, UNSPECIFIED FREQUENCY
     Route: 058

REACTIONS (5)
  - Overdose [Unknown]
  - Drug dose omission by device [Unknown]
  - Device delivery system issue [Unknown]
  - Device failure [Unknown]
  - Device issue [Unknown]

NARRATIVE: CASE EVENT DATE: 20220708
